FAERS Safety Report 14138687 (Version 1)
Quarter: 2017Q4

REPORT INFORMATION
  Report Type: Report from Study
  Country: IL (occurrence: IL)
  Receive Date: 20171027
  Receipt Date: 20171027
  Transmission Date: 20180321
  Serious: Yes (Hospitalization)
  Sender: FDA-Public Use
  Company Number: IL-BRISTOL-MYERS SQUIBB COMPANY-BMS-2017-094393

PATIENT
  Age: 76 Year
  Sex: Female

DRUGS (35)
  1. NIVOLUMAB [Suspect]
     Active Substance: NIVOLUMAB
     Indication: HAEMATOLOGICAL MALIGNANCY
     Dosage: 237 MG, Q2WK
     Route: 042
     Dates: start: 20151012
  2. AUGMENTIN [Concomitant]
     Active Substance: AMOXICILLIN\CLAVULANATE POTASSIUM
     Indication: PARONYCHIA
     Route: 065
  3. ELTROXIN [Concomitant]
     Active Substance: LEVOTHYROXINE
     Indication: PRODUCT USED FOR UNKNOWN INDICATION
     Dosage: 1 DF=100 UG
     Route: 048
  4. TAZOPIP [Concomitant]
     Active Substance: PIPERACETAZINE\TAZOBACTAM
     Indication: STAPHYLOCOCCAL INFECTION
     Route: 065
  5. ELATROL [Concomitant]
     Indication: PRODUCT USED FOR UNKNOWN INDICATION
     Dosage: 25 MG, UNK
     Route: 048
  6. OMEPRADEX [Concomitant]
     Active Substance: OMEPRAZOLE
     Indication: URINARY TRACT INFECTION
     Dosage: 20 MG, PRN
     Route: 048
  7. CIPRODEX                           /00697202/ [Concomitant]
     Indication: URINARY TRACT INFECTION
     Dosage: 750 MG, BID
     Route: 048
     Dates: start: 20160107, end: 20160804
  8. DEXAMETHASONE SODIUM PHOSPHATE. [Concomitant]
     Active Substance: DEXAMETHASONE SODIUM PHOSPHATE
     Indication: PRODUCT USED FOR UNKNOWN INDICATION
     Dosage: 0.1 %, QID
     Route: 047
  9. GENTAMYCIN SULPHATE [Concomitant]
     Indication: CONJUNCTIVITIS
     Dosage: 0.3 %, QD
     Route: 047
     Dates: start: 20160628
  10. SODIUM CHLORIDE. [Concomitant]
     Active Substance: SODIUM CHLORIDE
     Indication: URINARY TRACT INFECTION
     Dosage: 1000 ML, PRN
     Route: 042
     Dates: start: 20160107
  11. MUPIROCIN CALCIUM. [Concomitant]
     Active Substance: MUPIROCIN CALCIUM
     Indication: SINUSITIS
     Dosage: UNK
     Route: 061
     Dates: start: 201604
  12. TARDYFERON [Concomitant]
     Active Substance: FERROUS SULFATE
     Indication: ANAEMIA
     Dosage: 80 MG, BID
     Route: 048
     Dates: start: 20170509
  13. IBRUTINIB [Suspect]
     Active Substance: IBRUTINIB
     Indication: HAEMATOLOGICAL MALIGNANCY
     Dosage: 560 MG, QD
     Route: 048
     Dates: start: 20151012, end: 20170704
  14. AUGMENTIN [Concomitant]
     Active Substance: AMOXICILLIN\CLAVULANATE POTASSIUM
     Indication: INGROWING NAIL
     Dosage: 500 MG, BID
     Route: 048
     Dates: start: 20151126
  15. AMOXICILLIN TRIHYDRATE [Concomitant]
     Active Substance: AMOXICILLIN
     Indication: SINUSITIS
     Dosage: 875 MG, BID
     Route: 048
     Dates: start: 201604
  16. TAZOPIP [Concomitant]
     Active Substance: PIPERACETAZINE\TAZOBACTAM
     Indication: URINARY TRACT INFECTION
     Dosage: 4.5 G, BID
     Route: 042
     Dates: start: 20160107
  17. MACRODANTIN [Concomitant]
     Active Substance: NITROFURANTOIN
     Indication: URINARY TRACT INFECTION
     Dosage: 1 DF, BID
     Route: 048
     Dates: start: 20161118
  18. CEFORAL                            /00145502/ [Concomitant]
     Indication: URINARY TRACT INFECTION
     Dosage: 1 DF, TID
     Route: 048
     Dates: start: 20170315
  19. PREDNISONE. [Concomitant]
     Active Substance: PREDNISONE
     Indication: RASH MACULO-PAPULAR
     Dosage: 80 MG, UNK
     Route: 048
     Dates: start: 20151024, end: 20151105
  20. ZINNAT                             /00454602/ [Concomitant]
     Active Substance: CEFUROXIME SODIUM
     Indication: URINARY TRACT INFECTION
     Dosage: 500 MG, BID
     Route: 048
     Dates: start: 20160218, end: 20170515
  21. CIPROFLOXACIN. [Concomitant]
     Active Substance: CIPROFLOXACIN
     Indication: URINARY TRACT INFECTION
     Dosage: 500 MG, BID
     Route: 048
     Dates: start: 20170219
  22. ICHTHAMMOL [Concomitant]
     Active Substance: ICHTHAMMOL
     Indication: PARONYCHIA
     Dosage: 10 %, BID
     Route: 061
     Dates: start: 20160920
  23. SPASMALGIN [Concomitant]
     Active Substance: ACETAMINOPHEN\ATROPINE\CODEINE\PAPAVERINE
     Indication: NAUSEA
     Route: 065
  24. NORMITEN [Concomitant]
     Active Substance: ATENOLOL
     Indication: PRODUCT USED FOR UNKNOWN INDICATION
     Dosage: 50 MG, UNK
     Route: 048
  25. CEFTRIAXONE SODIUM. [Concomitant]
     Active Substance: CEFTRIAXONE SODIUM
     Indication: URINARY TRACT INFECTION
     Dosage: 2 G, QD
     Route: 042
     Dates: start: 20160107
  26. AERO VENT [Concomitant]
     Indication: ASTHMA
     Dosage: 0.25 MG, QD
     Route: 050
     Dates: start: 20160107
  27. PAXXET [Concomitant]
     Indication: PRODUCT USED FOR UNKNOWN INDICATION
     Dosage: 20 MG, QD
     Route: 048
  28. LOSEC [Concomitant]
     Active Substance: OMEPRAZOLE
     Indication: PRODUCT USED FOR UNKNOWN INDICATION
     Dosage: 20 MG, UNK
     Route: 042
  29. VANCOMYCIN [Concomitant]
     Active Substance: VANCOMYCIN
     Indication: URINARY TRACT INFECTION
     Dosage: 1000 MG, QD
     Route: 042
     Dates: start: 20160107
  30. PROPYGENTA [Concomitant]
     Indication: PARONYCHIA
     Dosage: 0.1 %, TID
     Route: 061
     Dates: start: 20160920
  31. AFLUMYCIN [Concomitant]
     Indication: PARONYCHIA
     Dosage: 20 G, QD
     Route: 061
     Dates: start: 20160705
  32. SPASMALGIN [Concomitant]
     Active Substance: ACETAMINOPHEN\ATROPINE\CODEINE\PAPAVERINE
     Indication: VOMITING
     Dosage: 1 DF, QD
     Route: 048
     Dates: start: 20170328
  33. VANCOMYCIN [Concomitant]
     Active Substance: VANCOMYCIN
     Indication: STAPHYLOCOCCAL INFECTION
     Route: 065
  34. SYNTHOMYCIN [Concomitant]
     Indication: CONJUNCTIVITIS
     Dosage: 5 %, QD
     Route: 065
     Dates: start: 20160628
  35. ZYMAR [Concomitant]
     Active Substance: GATIFLOXACIN
     Indication: PRODUCT USED FOR UNKNOWN INDICATION
     Dosage: 3 G, QID
     Route: 048

REACTIONS (1)
  - Anaemia [Not Recovered/Not Resolved]

NARRATIVE: CASE EVENT DATE: 20170704
